FAERS Safety Report 9859537 (Version 1)
Quarter: 2014Q1

REPORT INFORMATION
  Report Type: Spontaneous
  Country: US (occurrence: US)
  Receive Date: 20140131
  Receipt Date: 20140131
  Transmission Date: 20141002
  Serious: No
  Sender: FDA-Public Use
  Company Number: US-GILEAD-2014-0093196

PATIENT
  Sex: Male

DRUGS (3)
  1. VIREAD [Suspect]
     Indication: PRODUCT USED FOR UNKNOWN INDICATION
     Dosage: UNK, QOD
     Route: 065
     Dates: start: 201311
  2. VIREAD [Suspect]
     Dosage: UNK, QD
     Route: 065
  3. VIREAD [Suspect]
     Dosage: UNK, QD
     Route: 065
     Dates: start: 2009

REACTIONS (1)
  - Blood creatinine increased [Unknown]
